FAERS Safety Report 18186001 (Version 2)
Quarter: 2020Q3

REPORT INFORMATION
  Report Type: Spontaneous
  Country: FR (occurrence: FR)
  Receive Date: 20200824
  Receipt Date: 20200831
  Transmission Date: 20201103
  Serious: Yes (Other)
  Sender: FDA-Public Use
  Company Number: FR-ROCHE-2664025

PATIENT
  Age: 78 Year
  Sex: Female
  Weight: 54 kg

DRUGS (3)
  1. XELODA [Suspect]
     Active Substance: CAPECITABINE
     Indication: ADENOCARCINOMA PANCREAS
     Dosage: 42000 MG, CYCLIC
     Route: 048
     Dates: start: 20200416, end: 20200630
  2. OXALIPLATINE [Suspect]
     Active Substance: OXALIPLATIN
     Indication: ADENOCARCINOMA PANCREAS
     Dosage: 211 MG, CYCLIC
     Route: 042
     Dates: start: 20200415, end: 20200617
  3. XOLAIR [Suspect]
     Active Substance: OMALIZUMAB
     Indication: ASTHMA
     Dosage: 3 DF, Q4W
     Route: 058

REACTIONS (6)
  - Anaemia [Not Recovered/Not Resolved]
  - Muscle tightness [Recovered/Resolved]
  - Facial paralysis [Recovered/Resolved]
  - Nausea [Recovered/Resolved]
  - Diarrhoea [Recovered/Resolved]
  - Tremor [Recovered/Resolved]

NARRATIVE: CASE EVENT DATE: 20200506
